FAERS Safety Report 11832132 (Version 1)
Quarter: 2015Q4

REPORT INFORMATION
  Report Type: Spontaneous
  Country: JP (occurrence: JP)
  Receive Date: 20151214
  Receipt Date: 20151214
  Transmission Date: 20160305
  Serious: Yes (Death, Hospitalization)
  Sender: FDA-Public Use
  Company Number: JP-PFIZER INC-2015167494

PATIENT
  Age: 73 Year
  Sex: Male
  Weight: 75.4 kg

DRUGS (1)
  1. XALKORI [Suspect]
     Active Substance: CRIZOTINIB
     Indication: LUNG NEOPLASM MALIGNANT
     Dosage: 250 MG, 2X/DAY
     Route: 048
     Dates: start: 20150415, end: 20150508

REACTIONS (2)
  - Lung disorder [Fatal]
  - Pyrexia [Unknown]

NARRATIVE: CASE EVENT DATE: 20150427
